FAERS Safety Report 5021242-0 (Version None)
Quarter: 2006Q2

REPORT INFORMATION
  Report Type: 
  Country: None (occurrence: None)
  Receive Date: 20060605
  Receipt Date: 20060531
  Transmission Date: 20061013
  Serious: Yes (Other)
  Sender: FDA-Public Use
  Company Number: 2006025531

PATIENT
  Age: 51 Year
  Sex: Female
  Weight: 136.0791 kg

DRUGS (3)
  1. DIFLUCAN [Suspect]
     Indication: FUNGAL INFECTION
     Dosage: 200 MG (200 MG, 1 IN 1 WK) ORAL
     Route: 048
     Dates: start: 19980101, end: 19980101
  2. CHOLESTEROL - AND TRIGLYCERIDE REDUCERS [Concomitant]
  3. DRUG USED IN DIABETES [Concomitant]

REACTIONS (28)
  - ALBUMIN URINE PRESENT [None]
  - AMMONIA DECREASED [None]
  - AUTOIMMUNE HEPATITIS [None]
  - BACTERIA URINE IDENTIFIED [None]
  - BILIARY TRACT DISORDER [None]
  - BLOOD ALBUMIN DECREASED [None]
  - BLOOD TRIGLYCERIDES INCREASED [None]
  - BLOOD URINE PRESENT [None]
  - COLONIC POLYP [None]
  - DIABETES MELLITUS [None]
  - DIARRHOEA [None]
  - FAECAL INCONTINENCE [None]
  - FAECES DISCOLOURED [None]
  - GLUCOSE URINE [None]
  - GLYCOSYLATED HAEMOGLOBIN INCREASED [None]
  - HAEMOGLOBIN DECREASED [None]
  - HIGH DENSITY LIPOPROTEIN DECREASED [None]
  - MEAN PLATELET VOLUME INCREASED [None]
  - NITRITE URINE PRESENT [None]
  - PROTEIN TOTAL DECREASED [None]
  - PROTEIN URINE PRESENT [None]
  - RED BLOOD CELL COUNT DECREASED [None]
  - RED BLOOD CELL SEDIMENTATION RATE INCREASED [None]
  - SPECIFIC GRAVITY URINE INCREASED [None]
  - STEATORRHOEA [None]
  - URINARY SEDIMENT PRESENT [None]
  - WEIGHT DECREASED [None]
  - WHITE BLOOD CELLS URINE POSITIVE [None]
